FAERS Safety Report 6052671-4 (Version None)
Quarter: 2009Q1

REPORT INFORMATION
  Report Type: 
  Country: None (occurrence: None)
  Receive Date: 20090127
  Receipt Date: 20090114
  Transmission Date: 20090719
  Serious: Yes (Other)
  Sender: FDA-Public Use
  Company Number: US-PFIZER INC-2009155936

PATIENT
  Age: 24 Year
  Sex: Male

DRUGS (6)
  1. GEODON [Suspect]
     Dosage: 80 MG, 2X/DAY
  2. LITHIUM CARBONATE [Suspect]
     Dosage: 1500 MG, UNK
  3. ZYPREXA [Suspect]
  4. SEROQUEL [Suspect]
     Dosage: 300 MG, 1X/DAY
  5. ABILIFY [Suspect]
     Dosage: 30 MG, 1X/DAY
  6. DEPAKOTE [Suspect]
     Dosage: 2000 MG, 1X/DAY

REACTIONS (5)
  - BIPOLAR DISORDER [None]
  - DELUSION [None]
  - DRUG INEFFECTIVE [None]
  - HALLUCINATION [None]
  - SOMNOLENCE [None]
